FAERS Safety Report 17631419 (Version 2)
Quarter: 2020Q3

REPORT INFORMATION
  Report Type: Spontaneous
  Country: DK (occurrence: DK)
  Receive Date: 20200406
  Receipt Date: 20200707
  Transmission Date: 20201102
  Serious: Yes (Hospitalization)
  Sender: FDA-Public Use
  Company Number: DK-MYLANLABS-2020M1035138

PATIENT
  Age: 23 Year
  Sex: Female

DRUGS (1)
  1. ETHINYLESTRADIOL,LEVONORGESTREL MYLAN [Suspect]
     Active Substance: ETHINYL ESTRADIOL\LEVONORGESTREL
     Indication: PRODUCT USED FOR UNKNOWN INDICATION
     Dosage: 1 DOSAGE FORM, QD
     Route: 048
     Dates: start: 201808, end: 20190916

REACTIONS (9)
  - Disturbance in attention [Not Recovered/Not Resolved]
  - Visual impairment [Not Recovered/Not Resolved]
  - Headache [Not Recovered/Not Resolved]
  - Paraesthesia oral [Unknown]
  - Fatigue [Not Recovered/Not Resolved]
  - Cerebral venous sinus thrombosis [Recovered/Resolved with Sequelae]
  - Hypoaesthesia [Unknown]
  - Vomiting [Unknown]
  - Tinnitus [Not Recovered/Not Resolved]

NARRATIVE: CASE EVENT DATE: 201909
